FAERS Safety Report 10670414 (Version 2)
Quarter: 2015Q2

REPORT INFORMATION
  Report Type: Spontaneous
  Country: IT (occurrence: IT)
  Receive Date: 20141223
  Receipt Date: 20150529
  Transmission Date: 20150821
  Serious: Yes (Hospitalization)
  Sender: FDA-Public Use
  Company Number: IT-RANBAXY-2014RR-90521

PATIENT
  Age: 46 Year
  Sex: Female

DRUGS (2)
  1. ALPRAZOLAM. [Suspect]
     Active Substance: ALPRAZOLAM
     Indication: ANXIETY
     Dosage: 150 GTT, DAILY
     Route: 048
     Dates: start: 20110625, end: 20130625
  2. ZOLPIDEM [Suspect]
     Active Substance: ZOLPIDEM\ZOLPIDEM TARTRATE
     Indication: INSOMNIA
     Dosage: 40 MG, DAILY
     Route: 048
     Dates: start: 20110625, end: 20130625

REACTIONS (1)
  - Drug dependence [Recovering/Resolving]

NARRATIVE: CASE EVENT DATE: 20130625
